FAERS Safety Report 23839729 (Version 1)
Quarter: 2024Q2

REPORT INFORMATION
  Report Type: Spontaneous
  Country: US (occurrence: None)
  Receive Date: 20240510
  Receipt Date: 20240510
  Transmission Date: 20240716
  Serious: No
  Sender: FDA-Public Use
  Company Number: 2024A108905

PATIENT
  Age: 56 Year
  Sex: Male

DRUGS (2)
  1. PRILOSEC OTC [Suspect]
     Active Substance: OMEPRAZOLE MAGNESIUM
     Indication: Dyspepsia
     Dosage: 2 TABLET, 1 ONLY (ONE, BUT ONE TIME I DID TWICE)
     Route: 048
     Dates: start: 202404, end: 202404
  2. PRILOSEC OTC [Suspect]
     Active Substance: OMEPRAZOLE MAGNESIUM
     Indication: Dyspepsia
     Dosage: 1 TABLET, 1 /DAY (ONE, BUT ONE TIME I DID TWICE)
     Route: 048
     Dates: start: 20240422, end: 20240426

REACTIONS (2)
  - Oesophageal pain [Recovering/Resolving]
  - Overdose [Unknown]

NARRATIVE: CASE EVENT DATE: 20240425
